FAERS Safety Report 10199982 (Version 2)
Quarter: 2014Q2

REPORT INFORMATION
  Report Type: Spontaneous
  Country: US (occurrence: US)
  Receive Date: 20140527
  Receipt Date: 20140616
  Transmission Date: 20141212
  Serious: No
  Sender: FDA-Public Use
  Company Number: US-GILEAD-2014-0103329

PATIENT
  Age: 43 Year
  Sex: Female
  Weight: 197 kg

DRUGS (18)
  1. COMPLERA [Suspect]
     Indication: HIV INFECTION
     Dosage: UNK
     Route: 065
     Dates: start: 20140502
  2. TRUVADA [Concomitant]
     Indication: HIV INFECTION
     Dosage: UNK
     Route: 065
  3. TRUVADA [Concomitant]
     Dosage: UNK
     Dates: start: 20140520
  4. ISENTRESS [Concomitant]
     Indication: HIV INFECTION
     Dosage: UNK
  5. ISENTRESS [Concomitant]
     Dosage: UNK
     Dates: start: 20140520
  6. PREZISTA [Concomitant]
     Indication: HIV INFECTION
     Dosage: UNK
  7. PREZISTA [Concomitant]
     Dosage: UNK
     Dates: start: 20140520
  8. NORVIR [Concomitant]
     Indication: HIV INFECTION
     Dosage: UNK
  9. NORVIR [Concomitant]
     Dosage: UNK
     Dates: start: 20140520
  10. INTELENCE [Concomitant]
     Indication: HIV INFECTION
     Dosage: UNK
  11. INTELENCE [Concomitant]
     Dosage: UNK
     Dates: start: 20140520
  12. VALTREX [Concomitant]
  13. AMBIEN [Concomitant]
  14. COZAAR [Concomitant]
  15. HCT [Concomitant]
  16. ALBUTEROL                          /00139501/ [Concomitant]
  17. OMEPRAZOLE [Concomitant]
  18. FLUCONAZOLE [Concomitant]

REACTIONS (3)
  - Erythema nodosum [Unknown]
  - Skin lesion [Not Recovered/Not Resolved]
  - Pain in extremity [Recovered/Resolved]
